FAERS Safety Report 15110171 (Version 1)
Quarter: 2018Q2

REPORT INFORMATION
  Report Type: Spontaneous
  Country: US (occurrence: US)
  Receive Date: 20180612
  Receipt Date: 20180612
  Transmission Date: 20180711
  Serious: No
  Sender: FDA-Public Use
  Company Number: None

PATIENT
  Age: 34 Year
  Sex: Female

DRUGS (1)
  1. OCREVUS [Suspect]
     Active Substance: OCRELIZUMAB
     Indication: MULTIPLE SCLEROSIS
     Dosage: ?          OTHER FREQUENCY:Q 6 MONTHS;?
     Route: 042
     Dates: start: 20171129

REACTIONS (3)
  - Hepatitis B virus test positive [None]
  - Fatigue [None]
  - Bronchospasm [None]

NARRATIVE: CASE EVENT DATE: 20171129
